FAERS Safety Report 8789034 (Version 5)
Quarter: 2013Q2

REPORT INFORMATION
  Report Type: Report from Study
  Country: JP (occurrence: JP)
  Receive Date: 20120917
  Receipt Date: 20130606
  Transmission Date: 20140414
  Serious: Yes (Hospitalization, Other)
  Sender: FDA-Public Use
  Company Number: JP-009507513-1209JPN005677

PATIENT
  Age: 70 Year
  Sex: Male
  Weight: 62 kg

DRUGS (17)
  1. URSO [Concomitant]
     Indication: CHRONIC HEPATITIS C
     Dosage: 3 DOSAGE FORM, QD
     Route: 048
  2. PENTASA [Concomitant]
     Indication: COLITIS ULCERATIVE
     Dosage: 6 DOSAGE FORM, QD
     Route: 048
  3. SHAKUYAKU-KANZO-TO [Concomitant]
     Indication: MUSCLE SPASMS
     Dosage: 2.5 G, QD
     Route: 048
  4. AMLODIN OD [Concomitant]
     Indication: HYPERTENSION
     Dosage: 1 DOSAGE FORM, QD
     Route: 048
  5. ALLEGRA [Concomitant]
     Dosage: 2 DOSAGE FORM, QD
     Route: 048
  6. ALDACTONE A [Concomitant]
     Indication: HEPATITIS
     Dosage: 1 DOSAGE FORM
     Route: 048
  7. ALDACTONE A [Concomitant]
     Indication: OEDEMA
  8. GASTER D [Concomitant]
     Indication: GASTROOESOPHAGEAL REFLUX DISEASE
     Dosage: 1 DOSAGE FORM, QD
     Route: 048
  9. PARIET [Concomitant]
     Indication: OESOPHAGITIS
     Dosage: 1 DF, QD
     Route: 048
     Dates: start: 20120901
  10. PARIET [Concomitant]
     Indication: GASTROOESOPHAGEAL REFLUX DISEASE
  11. LASIX (FUROSEMIDE) [Concomitant]
     Indication: OEDEMA
     Dosage: 40 TO 60 MG, QD
     Route: 048
     Dates: start: 20120927
  12. PRIMPERAN [Concomitant]
     Indication: NAUSEA
     Dosage: 1TAB/DAY AS NEEDED
     Route: 048
     Dates: start: 20120825, end: 20120827
  13. PEGINTRON [Suspect]
     Indication: CHRONIC HEPATITIS C
     Dosage: 1.5 MICROGRAM PER KILOGRAM, QW
     Route: 058
     Dates: start: 20120818, end: 20120906
  14. REBETOL [Suspect]
     Indication: CHRONIC HEPATITIS C
     Dosage: 600 MG, QD
     Route: 048
     Dates: start: 20120818, end: 20120831
  15. REBETOL [Suspect]
     Dosage: 400 MG,QD
     Route: 048
     Dates: start: 20120905, end: 20120912
  16. TELAVIC [Suspect]
     Indication: CHRONIC HEPATITIS C
     Dosage: 1500 MG, QD
     Route: 048
     Dates: start: 20120818, end: 20120831
  17. TELAVIC [Suspect]
     Dosage: 1000 MG, QD
     Route: 048
     Dates: start: 20120905, end: 20120912

REACTIONS (7)
  - Renal impairment [Recovering/Resolving]
  - Rhabdomyolysis [Recovered/Resolved]
  - Hepatic encephalopathy [Recovering/Resolving]
  - Oedema [Not Recovered/Not Resolved]
  - Ascites [Unknown]
  - Ascites [Not Recovered/Not Resolved]
  - Rash papular [Recovering/Resolving]
